FAERS Safety Report 24281785 (Version 1)
Quarter: 2024Q3

REPORT INFORMATION
  Report Type: Spontaneous
  Country: US (occurrence: None)
  Receive Date: 20240904
  Receipt Date: 20240904
  Transmission Date: 20241016
  Serious: Yes (Disabling)
  Sender: Public
  Company Number: None

PATIENT
  Age: 64 Year
  Sex: Female
  Weight: 91.35 kg

DRUGS (1)
  1. ZEPBOUND [Suspect]
     Active Substance: TIRZEPATIDE
     Indication: Weight decreased
     Dosage: 4 INJECTIONS 1 A WEEK SUBCUTANEOUS?
     Route: 058

REACTIONS (4)
  - Back pain [None]
  - Gait inability [None]
  - Loss of personal independence in daily activities [None]
  - Arthralgia [None]

NARRATIVE: CASE EVENT DATE: 20240827
